FAERS Safety Report 7230894-6 (Version None)
Quarter: 2011Q1

REPORT INFORMATION
  Report Type: 
  Country: None (occurrence: None)
  Receive Date: 20110118
  Receipt Date: 20110113
  Transmission Date: 20110831
  Serious: Yes (Hospitalization)
  Sender: FDA-Public Use
  Company Number: JP-ROCHE-730738

PATIENT
  Sex: Female
  Weight: 52 kg

DRUGS (2)
  1. OLMETEC [Concomitant]
     Dosage: NOTE: ADMINISTERING IN MONITORING.
     Route: 048
     Dates: start: 20100824
  2. BEVACIZUMAB [Suspect]
     Indication: MALIGNANT GLIOMA
     Route: 041
     Dates: start: 20100901, end: 20100916

REACTIONS (1)
  - APPENDICITIS [None]
